FAERS Safety Report 9568167 (Version 1)
Quarter: 2013Q3

REPORT INFORMATION
  Report Type: Spontaneous
  Country: US (occurrence: US)
  Receive Date: 20130930
  Receipt Date: 20130930
  Transmission Date: 20140515
  Serious: No
  Sender: FDA-Public Use
  Company Number: US-AMGEN-USASP2013055931

PATIENT
  Age: 63 Year
  Sex: Female

DRUGS (3)
  1. ENBREL [Suspect]
     Indication: RHEUMATOID ARTHRITIS
     Dosage: 50 MG, QWK
     Route: 065
     Dates: start: 20130103, end: 201305
  2. METHOTREXATE [Concomitant]
     Dosage: 1 ML, QWK
     Dates: start: 2012
  3. ORENCIA [Concomitant]
     Dosage: 125 MG/ML, QWK
     Dates: start: 201305

REACTIONS (6)
  - Local swelling [Recovered/Resolved]
  - Pain in extremity [Recovered/Resolved]
  - C-reactive protein abnormal [Recovered/Resolved]
  - Cough [Not Recovered/Not Resolved]
  - Arthralgia [Not Recovered/Not Resolved]
  - Injection site discolouration [Not Recovered/Not Resolved]
